FAERS Safety Report 7074149-1 (Version None)
Quarter: 2010Q4

REPORT INFORMATION
  Report Type: 
  Country: None (occurrence: None)
  Receive Date: 20101029
  Receipt Date: 20101020
  Transmission Date: 20110411
  Serious: Yes (Other)
  Sender: FDA-Public Use
  Company Number: GB-PFIZER INC-2010133131

PATIENT
  Age: 54 Year
  Sex: Male

DRUGS (1)
  1. LYRICA [Suspect]
     Indication: GENERALISED ANXIETY DISORDER
     Dosage: 400 MG/ DAY

REACTIONS (4)
  - DEPRESSION [None]
  - NIGHT SWEATS [None]
  - WEIGHT INCREASED [None]
  - WITHDRAWAL SYNDROME [None]
